FAERS Safety Report 9413136 (Version 1)
Quarter: 2013Q3

REPORT INFORMATION
  Report Type: Spontaneous
  Country: IT (occurrence: IT)
  Receive Date: 20130722
  Receipt Date: 20130722
  Transmission Date: 20140515
  Serious: Yes (Other)
  Sender: FDA-Public Use
  Company Number: ALCN2013IT000623

PATIENT
  Age: 22 Year
  Sex: Female

DRUGS (2)
  1. MYDRIACYL [Suspect]
     Indication: DRUG WITHDRAWAL SYNDROME
     Dosage: 150 ML, QD
     Route: 042
  2. METHADONE [Concomitant]
     Dosage: 20 MG, QD

REACTIONS (3)
  - Anticholinergic syndrome [Recovering/Resolving]
  - Intentional drug misuse [Unknown]
  - Drug dependence [Unknown]
